FAERS Safety Report 12166800 (Version 1)
Quarter: 2016Q1

REPORT INFORMATION
  Report Type: Report from Study
  Country: US (occurrence: US)
  Receive Date: 20160310
  Receipt Date: 20160310
  Transmission Date: 20160526
  Serious: Yes (Death)
  Sender: FDA-Public Use
  Company Number: US-BEH-2016059451

PATIENT
  Age: 63 Year
  Sex: Male
  Weight: 93.1 kg

DRUGS (2)
  1. ZEMAIRA [Suspect]
     Active Substance: .ALPHA.1-PROTEINASE INHIBITOR HUMAN
     Indication: GRAFT VERSUS HOST DISEASE
     Dosage: IV DURATION OF 30 MINUTES
     Route: 042
     Dates: start: 20160111, end: 20160209
  2. ZEMAIRA [Suspect]
     Active Substance: .ALPHA.1-PROTEINASE INHIBITOR HUMAN
     Indication: ACUTE LYMPHOCYTIC LEUKAEMIA
     Dosage: IV DURATION OF 30 MINUTES
     Route: 042
     Dates: start: 20160111, end: 20160209

REACTIONS (8)
  - Septic shock [Fatal]
  - Vomiting [Unknown]
  - Aspiration [Unknown]
  - Sepsis [Fatal]
  - Hypotension [Unknown]
  - Nausea [Unknown]
  - Tachypnoea [Unknown]
  - Erythema [Unknown]

NARRATIVE: CASE EVENT DATE: 20160111
